FAERS Safety Report 4808463-4 (Version None)
Quarter: 2005Q4

REPORT INFORMATION
  Report Type: 
  Country: None (occurrence: None)
  Receive Date: 20051025
  Receipt Date: 20051003
  Transmission Date: 20060501
  Serious: Yes (Other)
  Sender: FDA-Public Use
  Company Number: JP-GILEAD-2005-0008760

PATIENT
  Sex: Male

DRUGS (12)
  1. HEPSERA [Suspect]
     Indication: HEPATITIS B
     Route: 048
     Dates: start: 20050214
  2. ZEFFIX [Concomitant]
     Dates: start: 20020603
  3. STRONG NEO-MINOPHAGEN C [Concomitant]
  4. PANTIVAN [Concomitant]
  5. HORIZON [Concomitant]
  6. JUVELA NICOTINATE [Concomitant]
  7. TOUGHMAC E [Concomitant]
  8. ASPARA K [Concomitant]
  9. ALLOPURINOL [Concomitant]
  10. NORVASC [Concomitant]
  11. CATLEP [Concomitant]
  12. HARNAL [Concomitant]

REACTIONS (3)
  - ALANINE AMINOTRANSFERASE INCREASED [None]
  - ASPARTATE AMINOTRANSFERASE INCREASED [None]
  - LIVER DISORDER [None]
